FAERS Safety Report 8465068-4 (Version None)
Quarter: 2012Q2

REPORT INFORMATION
  Report Type: 
  Country: None (occurrence: None)
  Receive Date: 20120626
  Receipt Date: 20120619
  Transmission Date: 20120825
  Serious: Yes (Hospitalization, Other)
  Sender: FDA-Public Use
  Company Number: US-BAYER-2012-019867

PATIENT
  Age: 37 Year
  Sex: Female
  Weight: 81.633 kg

DRUGS (7)
  1. YASMIN [Suspect]
     Dosage: UNK
  2. DROSPIRENONE AND ETHINYL ESTRADIOL [Suspect]
     Dosage: UNK
  3. ONE-A-DAY VITAMIN [Concomitant]
     Dosage: UNK, UNK, ONCE DAILY
  4. YAZ [Suspect]
     Indication: PREMENSTRUAL SYNDROME
     Dosage: UNK
     Dates: start: 20090501, end: 20100121
  5. YAZ [Suspect]
     Dosage: UNK
  6. YASMIN [Suspect]
     Indication: PREMENSTRUAL SYNDROME
     Dosage: UNK
     Dates: start: 20070716, end: 20080707
  7. DROSPIRENONE AND ETHINYL ESTRADIOL [Suspect]
     Indication: PREMENSTRUAL SYNDROME
     Dosage: UNK
     Dates: start: 20080707, end: 20090309

REACTIONS (4)
  - PAIN [None]
  - CHOLECYSTECTOMY [None]
  - ABDOMINAL PAIN [None]
  - CHOLECYSTITIS CHRONIC [None]
